FAERS Safety Report 8159409-5 (Version None)
Quarter: 2012Q1

REPORT INFORMATION
  Report Type: 
  Country: None (occurrence: None)
  Receive Date: 20120223
  Receipt Date: 20120124
  Transmission Date: 20120608
  Serious: No
  Sender: FDA-Public Use
  Company Number: US-BAYER-2012-007971

PATIENT
  Age: 48 Year
  Sex: Female

DRUGS (2)
  1. MIRENA [Suspect]
     Dosage: 20 MCG/24HR, CONT
     Route: 015
     Dates: start: 20110505
  2. CHORIONIC GONADOTROPIN [Concomitant]
     Indication: WEIGHT ABNORMAL
     Dosage: UNK
     Route: 048
     Dates: start: 20120101, end: 20120124

REACTIONS (2)
  - EMOTIONAL DISORDER [None]
  - VOMITING IN PREGNANCY [None]
